FAERS Safety Report 8180454-8 (Version None)
Quarter: 2012Q1

REPORT INFORMATION
  Report Type: 
  Country: None (occurrence: None)
  Receive Date: 20120302
  Receipt Date: 20120221
  Transmission Date: 20120608
  Serious: Yes (Hospitalization)
  Sender: FDA-Public Use
  Company Number: JP-ACTELION-A-CH2012-61585

PATIENT
  Sex: Female
  Weight: 66.5 kg

DRUGS (8)
  1. LOSARTAN POTASSIUM [Concomitant]
  2. CALCIUM PANTOTHENATE [Concomitant]
  3. LAFUTIDINE [Concomitant]
  4. ALENDRONATE SODIUM [Concomitant]
  5. TRACLEER [Suspect]
     Indication: PULMONARY ARTERIAL HYPERTENSION
     Dosage: 62.5 MG, BID
     Route: 048
     Dates: start: 20110214, end: 20110310
  6. ASCORBIC ACID [Concomitant]
  7. ALFACALCIDOL [Concomitant]
  8. TOCOPHEROL CONCENTRATE CAP [Concomitant]

REACTIONS (4)
  - LIVER DISORDER [None]
  - ASPARTATE AMINOTRANSFERASE INCREASED [None]
  - GAMMA-GLUTAMYLTRANSFERASE INCREASED [None]
  - ALANINE AMINOTRANSFERASE INCREASED [None]
